FAERS Safety Report 6979618-8 (Version None)
Quarter: 2010Q3

REPORT INFORMATION
  Report Type: 
  Country: None (occurrence: None)
  Receive Date: 20100910
  Receipt Date: 20100910
  Transmission Date: 20110219
  Serious: Yes (Hospitalization)
  Sender: FDA-Public Use
  Company Number: None

PATIENT
  Age: 64 Year
  Sex: Male
  Weight: 74.92 kg

DRUGS (9)
  1. NEXAVAR [Suspect]
     Indication: METASTASES TO LUNG
     Dosage: 400 MG DAILY PO
     Route: 048
     Dates: start: 20090601, end: 20091205
  2. NEXAVAR [Suspect]
     Indication: RENAL CELL CARCINOMA
     Dosage: 400 MG DAILY PO
     Route: 048
     Dates: start: 20090601, end: 20091205
  3. SIMVASTATIN [Concomitant]
  4. LABETALOL HCL [Concomitant]
  5. METFORMIN [Concomitant]
  6. PLAVIX [Concomitant]
  7. DIOVAN [Concomitant]
  8. ASPIRIN [Concomitant]
  9. PERCOCET [Concomitant]

REACTIONS (3)
  - CHEST PAIN [None]
  - DELIRIUM TREMENS [None]
  - HYPERTENSION [None]
